FAERS Safety Report 6338660-0 (Version None)
Quarter: 2009Q3

REPORT INFORMATION
  Report Type: 
  Country: None (occurrence: None)
  Receive Date: 20090903
  Receipt Date: 20090826
  Transmission Date: 20100115
  Serious: Yes (Hospitalization)
  Sender: FDA-Public Use
  Company Number: US-BIOGENIDEC-2009BI017711

PATIENT
  Age: 53 Year
  Sex: Female

DRUGS (3)
  1. AVONEX [Suspect]
     Indication: MULTIPLE SCLEROSIS
     Route: 030
     Dates: start: 20070301
  2. AVONEX [Suspect]
     Route: 030
     Dates: start: 20070301
  3. AVONEX [Suspect]
     Route: 030

REACTIONS (2)
  - MULTIPLE SCLEROSIS RELAPSE [None]
  - URINARY TRACT INFECTION STAPHYLOCOCCAL [None]
